FAERS Safety Report 19865362 (Version 2)
Quarter: 2021Q4

REPORT INFORMATION
  Report Type: Report from Study
  Country: IT (occurrence: IT)
  Receive Date: 20210921
  Receipt Date: 20211018
  Transmission Date: 20220303
  Serious: Yes (Other)
  Sender: FDA-Public Use
  Company Number: IT-MERCK HEALTHCARE KGAA-9257838

PATIENT
  Age: 47 Year
  Sex: Female
  Weight: 51 kg

DRUGS (10)
  1. AVELUMAB [Suspect]
     Active Substance: AVELUMAB
     Indication: Colorectal cancer metastatic
     Dates: start: 20210402
  2. AVELUMAB [Suspect]
     Active Substance: AVELUMAB
     Dates: start: 20210802
  3. CETUXIMAB [Suspect]
     Active Substance: CETUXIMAB
     Indication: Colorectal cancer metastatic
     Dates: start: 20210412
  4. CETUXIMAB [Suspect]
     Active Substance: CETUXIMAB
     Dates: start: 20210802
  5. IRINOTECAN [Suspect]
     Active Substance: IRINOTECAN
     Indication: Colorectal cancer metastatic
     Dates: start: 20210412
  6. IRINOTECAN [Suspect]
     Active Substance: IRINOTECAN
     Dates: start: 20210802
  7. OXALIPLATIN [Suspect]
     Active Substance: OXALIPLATIN
     Indication: Colorectal cancer metastatic
     Dates: start: 20210412
  8. OXALIPLATIN [Suspect]
     Active Substance: OXALIPLATIN
     Dates: start: 20210802
  9. FLUOROURACIL [Suspect]
     Active Substance: FLUOROURACIL
     Indication: Colorectal cancer metastatic
     Dates: start: 20210412
  10. FLUOROURACIL [Suspect]
     Active Substance: FLUOROURACIL
     Dates: start: 20210802

REACTIONS (1)
  - Secondary adrenocortical insufficiency [Recovered/Resolved]

NARRATIVE: CASE EVENT DATE: 20210803
